FAERS Safety Report 24678941 (Version 1)
Quarter: 2024Q4

REPORT INFORMATION
  Report Type: Spontaneous
  Country: US (occurrence: US)
  Receive Date: 20241129
  Receipt Date: 20241129
  Transmission Date: 20250115
  Serious: No
  Sender: PHARMING GROUP
  Company Number: US-PHARMING-PHAUS2024001100

PATIENT

DRUGS (2)
  1. RUCONEST [Suspect]
     Active Substance: CONESTAT ALFA
     Indication: Hereditary angioedema
     Dosage: 3725 IU, AS NEEDED
     Route: 042
     Dates: start: 202311
  2. RUCONEST [Suspect]
     Active Substance: CONESTAT ALFA
     Dosage: 3725 IU, AS NEEDED
     Route: 042
     Dates: start: 202311

REACTIONS (2)
  - Alopecia [Unknown]
  - Ankle fracture [Unknown]

NARRATIVE: CASE EVENT DATE: 20240401
